FAERS Safety Report 10273755 (Version 1)
Quarter: 2014Q2

REPORT INFORMATION
  Report Type: Spontaneous
  Country: US (occurrence: None)
  Receive Date: 20140630
  Receipt Date: 20140630
  Transmission Date: 20141212
  Serious: Yes (Other)
  Sender: FDA-Public Use
  Company Number: None

PATIENT
  Age: 60 Year
  Sex: Female
  Weight: 64 kg

DRUGS (3)
  1. CARBOPLATIN [Suspect]
     Indication: BREAST CANCER
     Route: 042
     Dates: start: 20140626
  2. TAXOTERE [Concomitant]
  3. HERCEPTIN [Concomitant]

REACTIONS (9)
  - Flushing [None]
  - Chest pain [None]
  - Heart rate increased [None]
  - Flushing [None]
  - Paraesthesia oral [None]
  - Paraesthesia [None]
  - Tremor [None]
  - Hypoaesthesia [None]
  - Blood pressure increased [None]
